FAERS Safety Report 4488261-4 (Version None)
Quarter: 2004Q4

REPORT INFORMATION
  Report Type: 
  Country: None (occurrence: None)
  Receive Date: 20041028
  Receipt Date: 20040506
  Transmission Date: 20050328
  Serious: Yes (Hospitalization)
  Sender: FDA-Public Use
  Company Number: PHEH2004US05077

PATIENT
  Age: 40 Year
  Sex: Female

DRUGS (9)
  1. ZELNORM [Suspect]
     Indication: CONSTIPATION
     Dosage: 6 MG, BID
     Route: 048
     Dates: start: 20040427, end: 20040505
  2. ZOFRAN [Concomitant]
     Dosage: 4 MG, PRN
     Route: 048
  3. CLORAZEPATE DIPOTASSIUM [Concomitant]
     Dosage: 15 MG, TID
     Route: 048
  4. SEROQUEL [Concomitant]
     Dosage: 25 MG, QHS
     Route: 048
  5. NEXIUM [Concomitant]
     Dosage: 40 MG, BID
     Route: 048
  6. BUSPIRONE [Concomitant]
     Dosage: 5 MG, BID
     Route: 048
  7. LAMICTAL [Concomitant]
     Dosage: 200 MG, BID
     Route: 048
  8. WELLBUTRIN [Concomitant]
     Dosage: 150 MG, BID
     Route: 048
  9. HYDROXYZINE [Concomitant]
     Dosage: 15 MG, PRN
     Route: 048

REACTIONS (17)
  - ABDOMINAL DISTENSION [None]
  - ABDOMINAL TENDERNESS [None]
  - ABNORMAL FAECES [None]
  - BIOPSY COLON ABNORMAL [None]
  - CLOSTRIDIUM COLITIS [None]
  - COLECTOMY PARTIAL [None]
  - COLITIS ISCHAEMIC [None]
  - COLONOSCOPY ABNORMAL [None]
  - COMPUTERISED TOMOGRAM ABDOMEN ABNORMAL [None]
  - DIARRHOEA [None]
  - FAECAL OCCULT BLOOD POSITIVE [None]
  - GASTROINTESTINAL OEDEMA [None]
  - MUCOSAL INFLAMMATION [None]
  - PROCTALGIA [None]
  - PROCTITIS [None]
  - VOLVULUS OF BOWEL [None]
  - WHITE BLOOD CELL COUNT INCREASED [None]
